FAERS Safety Report 23078383 (Version 4)
Quarter: 2023Q4

REPORT INFORMATION
  Report Type: Spontaneous
  Country: GB (occurrence: GB)
  Receive Date: 20231018
  Receipt Date: 20231129
  Transmission Date: 20240110
  Serious: Yes (Hospitalization, Disabling, Other)
  Sender: FDA-Public Use
  Company Number: None

PATIENT
  Sex: Female

DRUGS (6)
  1. BETAMETHASONE DIPROPIONATE [Suspect]
     Active Substance: BETAMETHASONE DIPROPIONATE
     Indication: Product used for unknown indication
     Dosage: UNK
     Route: 065
     Dates: start: 1990
  2. MOMETASONE FUROATE [Suspect]
     Active Substance: MOMETASONE FUROATE
     Indication: Product used for unknown indication
     Dosage: UNK
     Route: 065
     Dates: start: 2020
  3. BETAMETHASONE DIPROPIONATE\CALCIPOTRIENE MONOHYDRATE [Suspect]
     Active Substance: BETAMETHASONE DIPROPIONATE\CALCIPOTRIENE MONOHYDRATE
     Indication: Product used for unknown indication
     Dosage: UNK
     Route: 065
     Dates: start: 2022
  4. EUMOVATE [Suspect]
     Active Substance: CLOBETASONE BUTYRATE
     Indication: Product used for unknown indication
     Dosage: UNK
     Dates: start: 202302
  5. FUSIDIC ACID\HYDROCORTISONE ACETATE [Suspect]
     Active Substance: FUSIDIC ACID\HYDROCORTISONE ACETATE
     Indication: Product used for unknown indication
     Dosage: UNK
     Route: 065
     Dates: start: 2021
  6. CHLORTETRACYCLINE\CLOBETASONE\NYSTATIN [Suspect]
     Active Substance: CHLORTETRACYCLINE\CLOBETASONE\NYSTATIN
     Indication: Product used for unknown indication
     Dosage: UNK
     Route: 065

REACTIONS (16)
  - Medication error [Unknown]
  - Eczema herpeticum [Recovering/Resolving]
  - Weight decreased [Not Recovered/Not Resolved]
  - Hepatic steatosis [Recovering/Resolving]
  - Alopecia [Recovering/Resolving]
  - Skin hyperpigmentation [Not Recovered/Not Resolved]
  - Insomnia [Recovering/Resolving]
  - Rash [Not Recovered/Not Resolved]
  - Neuropathy peripheral [Not Recovered/Not Resolved]
  - Adrenocortical insufficiency acute [Not Recovered/Not Resolved]
  - Oedema [Recovering/Resolving]
  - Skin burning sensation [Recovering/Resolving]
  - Anal pruritus [Recovered/Resolved]
  - Pruritus genital [Recovered/Resolved]
  - Topical steroid withdrawal reaction [Unknown]
  - Product use issue [Unknown]

NARRATIVE: CASE EVENT DATE: 20220901
